FAERS Safety Report 6430473-4 (Version None)
Quarter: 2009Q4

REPORT INFORMATION
  Report Type: 
  Country: None (occurrence: None)
  Receive Date: 20091106
  Receipt Date: 20091027
  Transmission Date: 20100525
  Serious: Yes (Hospitalization)
  Sender: FDA-Public Use
  Company Number: KR-ELI_LILLY_AND_COMPANY-KR200910002703

PATIENT
  Age: 56 Year
  Sex: Male

DRUGS (1)
  1. HUMALOG MIX 75/25 [Suspect]
     Indication: DIABETES MELLITUS
     Dosage: 26 U, DAILY (1/D) (14U AM AND 12U PM)
     Route: 058
     Dates: start: 20090723

REACTIONS (1)
  - PANCREATITIS [None]
